FAERS Safety Report 15153261 (Version 1)
Quarter: 2018Q3

REPORT INFORMATION
  Report Type: Spontaneous
  Country: US (occurrence: US)
  Receive Date: 20180619
  Receipt Date: 20180619
  Transmission Date: 20181010
  Serious: Yes (Other)
  Sender: FDA-Public Use
  Company Number: None

PATIENT
  Age: 58 Year
  Sex: Female
  Weight: 84.15 kg

DRUGS (12)
  1. METOPROLOL SUCCINATE. [Concomitant]
     Active Substance: METOPROLOL SUCCINATE
  2. SYNTHROID [Concomitant]
     Active Substance: LEVOTHYROXINE SODIUM
  3. SINGULAIR [Concomitant]
     Active Substance: MONTELUKAST SODIUM
  4. CLARITIN [Concomitant]
     Active Substance: LORATADINE
  5. ATORVASTATIN CALCIUM. [Suspect]
     Active Substance: ATORVASTATIN CALCIUM
     Indication: CEREBROVASCULAR ACCIDENT
     Dosage: ?          QUANTITY:1 TABLET(S);?
     Route: 048
     Dates: start: 20180430
  6. LISINOPRIL. [Concomitant]
     Active Substance: LISINOPRIL
  7. ADVAIR DISKUS [Concomitant]
     Active Substance: FLUTICASONE PROPIONATE\SALMETEROL XINAFOATE
  8. MELOXICAM. [Concomitant]
     Active Substance: MELOXICAM
  9. SPIRIVA [Concomitant]
     Active Substance: TIOTROPIUM BROMIDE MONOHYDRATE
  10. LEG CRAMP MEDICINE [Concomitant]
  11. ASPIRIN. [Concomitant]
     Active Substance: ASPIRIN
  12. VITAMIN D [Concomitant]
     Active Substance: CHOLECALCIFEROL

REACTIONS (6)
  - Asthenia [None]
  - Dyskinesia [None]
  - Aphasia [None]
  - Gait disturbance [None]
  - Dysarthria [None]
  - Feeling abnormal [None]

NARRATIVE: CASE EVENT DATE: 20180526
